FAERS Safety Report 26144368 (Version 1)
Quarter: 2025Q4

REPORT INFORMATION
  Report Type: Report from Study
  Country: IL (occurrence: IL)
  Receive Date: 20251211
  Receipt Date: 20251211
  Transmission Date: 20260117
  Serious: Yes (Death, Life-Threatening)
  Sender: GENMAB
  Company Number: IL-ABBVIE-6567263

PATIENT
  Age: 34 Year
  Sex: Male
  Weight: 78.5 kg

DRUGS (6)
  1. EPCORITAMAB [Suspect]
     Active Substance: EPCORITAMAB
     Indication: Diffuse large B-cell lymphoma
     Dosage: 0.16 MILLIGRAM, WEEKLY
     Route: 058
     Dates: start: 20251009, end: 20251009
  2. EPCORITAMAB [Suspect]
     Active Substance: EPCORITAMAB
     Dosage: 0.8 MILLIGRAM, WEEKLY
     Route: 058
     Dates: start: 20251016, end: 20251016
  3. EPCORITAMAB [Suspect]
     Active Substance: EPCORITAMAB
     Dosage: 48 MILLIGRAM, WEEKLY
     Route: 058
     Dates: start: 20251024, end: 20251024
  4. KINERET [Concomitant]
     Active Substance: ANAKINRA
     Indication: Haemophagocytic lymphohistiocytosis
     Dosage: 200 MILLIGRAM, QD
     Route: 042
     Dates: start: 20251007
  5. DEXAMETHASONE [Concomitant]
     Active Substance: DEXAMETHASONE
     Indication: Haemophagocytic lymphohistiocytosis
     Dosage: 20 MILLIGRAM, QD
     Route: 042
     Dates: start: 20251006
  6. ETOPOSIDE [Concomitant]
     Active Substance: ETOPOSIDE
     Indication: Haemophagocytic lymphohistiocytosis
     Dosage: UNK
     Route: 065
     Dates: start: 20251015, end: 20251015

REACTIONS (2)
  - Candida test positive [Fatal]
  - Clostridium test positive [Not Recovered/Not Resolved]

NARRATIVE: CASE EVENT DATE: 20251108
